FAERS Safety Report 15983059 (Version 1)
Quarter: 2019Q1

REPORT INFORMATION
  Report Type: Spontaneous
  Country: US (occurrence: US)
  Receive Date: 20190125
  Receipt Date: 20190125
  Transmission Date: 20190418
  Serious: Yes (Hospitalization)
  Sender: FDA-Public Use
  Company Number: None

PATIENT
  Age: 79 Year
  Sex: Male

DRUGS (1)
  1. DALTEPARIN [Suspect]
     Active Substance: DALTEPARIN
     Indication: ANTICOAGULANT THERAPY
     Dosage: ?          OTHER DOSE:12500 UNITS;?
     Route: 058
     Dates: start: 20181126, end: 20190103

REACTIONS (3)
  - Abdominal wall haematoma [None]
  - Traumatic haematoma [None]
  - Fall [None]

NARRATIVE: CASE EVENT DATE: 20190103
